FAERS Safety Report 19410817 (Version 1)
Quarter: 2021Q2

REPORT INFORMATION
  Report Type: Spontaneous
  Country: US (occurrence: US)
  Receive Date: 20210612
  Receipt Date: 20210612
  Transmission Date: 20210717
  Serious: Yes (Hospitalization)
  Sender: FDA-Public Use
  Company Number: None

PATIENT
  Age: 81 Year
  Sex: Male
  Weight: 69 kg

DRUGS (1)
  1. LENALIDOMIDE (CC?5013) (703813) [Suspect]
     Active Substance: LENALIDOMIDE
     Dates: end: 20210407

REACTIONS (12)
  - Hypotension [None]
  - Fatigue [None]
  - Encephalopathy [None]
  - Pyrexia [None]
  - Arthropod bite [None]
  - Confusional state [None]
  - Therapy cessation [None]
  - Rash erythematous [None]
  - Dyspnoea [None]
  - Pancytopenia [None]
  - Blood creatinine increased [None]
  - Anxiety [None]

NARRATIVE: CASE EVENT DATE: 20210527
